FAERS Safety Report 6439872-8 (Version None)
Quarter: 2009Q4

REPORT INFORMATION
  Report Type: 
  Country: None (occurrence: None)
  Receive Date: 20091110
  Receipt Date: 20091026
  Transmission Date: 20100525
  Serious: Yes (Hospitalization, Other)
  Sender: FDA-Public Use
  Company Number: 2009AC000043

PATIENT
  Age: 72 Year
  Sex: Male

DRUGS (19)
  1. DIGOXIN [Suspect]
     Dosage: 0.125 MG; QD; PO
     Route: 048
  2. ZOCOR [Concomitant]
  3. COUMADIN [Concomitant]
  4. CEPHULAC [Concomitant]
  5. MAGNESIUM [Concomitant]
  6. AMIODARONE HCL [Concomitant]
  7. ASPIRIN [Concomitant]
  8. PEPCID [Concomitant]
  9. HALDOL [Concomitant]
  10. PROBENECID [Concomitant]
  11. JANUVIA [Concomitant]
  12. GLIMEPIRIDE [Concomitant]
  13. DOCUSATE [Concomitant]
  14. COZAAR [Concomitant]
  15. COREG [Concomitant]
  16. DOXAZOSIN [Concomitant]
  17. SLOW-MAGNESIUM [Concomitant]
  18. ZAROXOLYN [Concomitant]
  19. SYSTANE EYE DROPS [Concomitant]

REACTIONS (36)
  - ABDOMINAL DISCOMFORT [None]
  - ACUTE LUNG INJURY [None]
  - ALANINE AMINOTRANSFERASE INCREASED [None]
  - ANXIETY [None]
  - ARRHYTHMIA [None]
  - ASPARTATE AMINOTRANSFERASE INCREASED [None]
  - ASTHENIA [None]
  - ATRIAL FIBRILLATION [None]
  - AZOTAEMIA [None]
  - BLOOD GLUCOSE INCREASED [None]
  - CARDIAC FAILURE CONGESTIVE [None]
  - CARDIOACTIVE DRUG LEVEL INCREASED [None]
  - CORONARY ARTERY DISEASE [None]
  - DEEP VEIN THROMBOSIS [None]
  - DIZZINESS [None]
  - DROWNING [None]
  - DYSPEPSIA [None]
  - ECONOMIC PROBLEM [None]
  - ELECTROCARDIOGRAM ABNORMAL [None]
  - FLUID OVERLOAD [None]
  - HAEMATOCRIT DECREASED [None]
  - HYPERTENSION [None]
  - ISCHAEMIA [None]
  - LOSS OF CONSCIOUSNESS [None]
  - MALIGNANT HYPERTENSION [None]
  - METABOLIC ACIDOSIS [None]
  - MULTIPLE INJURIES [None]
  - MYOCARDIAL INFARCTION [None]
  - NAUSEA [None]
  - OEDEMA PERIPHERAL [None]
  - PAIN [None]
  - PNEUMONIA [None]
  - RENAL FAILURE [None]
  - RENAL FAILURE CHRONIC [None]
  - SEPSIS [None]
  - WEIGHT DECREASED [None]
